FAERS Safety Report 4768920-6 (Version None)
Quarter: 2005Q3

REPORT INFORMATION
  Report Type: 
  Country: None (occurrence: None)
  Receive Date: 20050914
  Receipt Date: 20050906
  Transmission Date: 20060218
  Serious: Yes (Disabling)
  Sender: FDA-Public Use
  Company Number: 200512768GDS

PATIENT
  Age: 57 Year
  Sex: Female
  Weight: 56.56 kg

DRUGS (12)
  1. CIPROXINA (CIPROFLOXACIN HYDROCHLORIDE) [Suspect]
     Indication: HIP ARTHROPLASTY
     Dosage: SEE IMAGE
     Dates: start: 20050419, end: 20050503
  2. CIPROXINA (CIPROFLOXACIN HYDROCHLORIDE) [Suspect]
     Indication: POSTOPERATIVE INFECTION
     Dosage: SEE IMAGE
     Dates: start: 20050419, end: 20050503
  3. CIPROXINA (CIPROFLOXACIN HYDROCHLORIDE) [Suspect]
     Indication: HIP ARTHROPLASTY
     Dosage: SEE IMAGE
     Dates: start: 20050504, end: 20050810
  4. CIPROXINA (CIPROFLOXACIN HYDROCHLORIDE) [Suspect]
     Indication: POSTOPERATIVE INFECTION
     Dosage: SEE IMAGE
     Dates: start: 20050504, end: 20050810
  5. CLINDAMYCIN [Suspect]
     Dosage: INTRAVENOUS
     Route: 042
  6. MINOCYCLIN [Concomitant]
  7. EVISTA [Concomitant]
  8. ETALPHA [Concomitant]
  9. INHIBACE [Concomitant]
  10. CLEANE [Concomitant]
  11. FOLIC ACID [Concomitant]
  12. EXCEDRIN /BRA/ [Concomitant]

REACTIONS (7)
  - ARTHRALGIA [None]
  - ARTHRITIS REACTIVE [None]
  - ASTHENIA [None]
  - INJECTION SITE JOINT PAIN [None]
  - NECK PAIN [None]
  - TREATMENT NONCOMPLIANCE [None]
  - WRONG TECHNIQUE IN DRUG USAGE PROCESS [None]
